FAERS Safety Report 4311676-1 (Version None)
Quarter: 2004Q1

REPORT INFORMATION
  Report Type: 
  Country: None (occurrence: None)
  Receive Date: 20040303
  Receipt Date: 20040303
  Transmission Date: 20041129
  Serious: No
  Sender: FDA-Public Use
  Company Number: None

PATIENT
  Age: 39 Year
  Sex: Female
  Weight: 73.0291 kg

DRUGS (1)
  1. AUGMENTIN '400' [Suspect]
     Indication: SINUSITIS
     Dosage: 200 MG TWICE DAIL ORAL
     Route: 048
     Dates: start: 20040226, end: 20040229

REACTIONS (2)
  - DIARRHOEA [None]
  - MUSCLE CRAMP [None]
